FAERS Safety Report 10033235 (Version 1)
Quarter: 2014Q1

REPORT INFORMATION
  Report Type: Spontaneous
  Country: GB (occurrence: GB)
  Receive Date: 20140324
  Receipt Date: 20140324
  Transmission Date: 20141002
  Serious: Yes (Life-Threatening)
  Sender: FDA-Public Use
  Company Number: GB-MYLANLABS-2014S1005594

PATIENT
  Age: 54 Year
  Sex: Male
  Weight: 81 kg

DRUGS (3)
  1. CIPROFLOXACIN [Suspect]
  2. BETAMETHASONE VALERATE [Concomitant]
     Dates: start: 20140123, end: 20140130
  3. RAMIPRIL [Concomitant]
     Dates: start: 20131205, end: 20140102

REACTIONS (5)
  - Cardiac arrest [Recovered/Resolved]
  - Muscle spasms [Unknown]
  - Anxiety [Unknown]
  - Depressed mood [Unknown]
  - Paraesthesia oral [Unknown]
